FAERS Safety Report 7206286-2 (Version None)
Quarter: 2011Q1

REPORT INFORMATION
  Report Type: 
  Country: None (occurrence: None)
  Receive Date: 20110103
  Receipt Date: 20101221
  Transmission Date: 20110831
  Serious: Yes (Hospitalization, Other)
  Sender: FDA-Public Use
  Company Number: PHEH2009US01388

PATIENT
  Sex: Female

DRUGS (33)
  1. AMIFOSTINE [Concomitant]
     Dosage: UNK
  2. SULFAMETHOXAZOLE [Concomitant]
  3. PENICILLIN ^GRUNENTHAL^ [Concomitant]
  4. IMIPENEM [Concomitant]
     Dosage: UNK
  5. BIAXIN XL [Concomitant]
  6. PROCRIT                            /00909301/ [Concomitant]
     Dosage: UNK
  7. COMPAZINE [Concomitant]
     Dosage: UNK
  8. LEVAQUIN [Concomitant]
  9. RESTYLANE [Concomitant]
  10. LISINOPRIL AND HYDROCHLOROTHIAZIDE [Concomitant]
  11. THALIDOMIDE [Concomitant]
     Dosage: UNK
     Dates: start: 20050301, end: 20090716
  12. BACTRIM [Concomitant]
     Dosage: UNK
  13. ACYCLOVIR [Concomitant]
  14. ACTIVASE [Concomitant]
     Dosage: UNK
  15. PROMETHAZINE DM [Concomitant]
  16. MELPHALAN [Concomitant]
     Dosage: UNK
  17. FLUCONAZOLE [Concomitant]
     Dosage: UNK
  18. AMPICILLIN [Concomitant]
     Dosage: 500 MG, UNK
  19. PREMPRO [Concomitant]
  20. AREDIA [Suspect]
     Indication: MULTIPLE MYELOMA
     Dosage: 90 MG, EVERY 3 MONTHS
     Dates: start: 20000530
  21. HYDROCHLOROTHIAZIDE [Concomitant]
  22. DECADRON [Concomitant]
     Dosage: UNK
  23. CIPRO [Concomitant]
     Dosage: 500 MG, UNK
  24. FLAGYL [Concomitant]
  25. VICODIN [Concomitant]
  26. PRILOSEC [Concomitant]
     Dosage: UNK
  27. CHLORHEXIDINE [Concomitant]
     Dosage: UNK
  28. ZOFRAN [Concomitant]
     Dosage: UNK
  29. ATIVAN [Concomitant]
     Dosage: UNK
  30. VALTREX [Concomitant]
     Dosage: UNK
  31. MAGIC MOUTHWASH [Concomitant]
  32. AUGMENTIN '125' [Concomitant]
  33. DOXYCYCLINE [Concomitant]

REACTIONS (52)
  - PAIN [None]
  - DISCOMFORT [None]
  - MASTICATION DISORDER [None]
  - ANHEDONIA [None]
  - MELANOCYTIC NAEVUS [None]
  - ANXIETY [None]
  - PHYSICAL DISABILITY [None]
  - BONE DISORDER [None]
  - FISTULA [None]
  - MUCOSAL INFLAMMATION [None]
  - OSTEOPOROSIS [None]
  - URETHRAL OBSTRUCTION [None]
  - NEPHROLITHIASIS [None]
  - LUNG INFILTRATION [None]
  - PARAESTHESIA ORAL [None]
  - HYPERTENSION [None]
  - CATHETER PLACEMENT [None]
  - RENAL CYST [None]
  - CARDIOMEGALY [None]
  - SPINAL OSTEOARTHRITIS [None]
  - EMOTIONAL DISTRESS [None]
  - VAGINITIS BACTERIAL [None]
  - INFECTIOUS DISEASE CARRIER [None]
  - NEUROPATHY PERIPHERAL [None]
  - SCAR [None]
  - LIFE EXPECTANCY SHORTENED [None]
  - SINUS CONGESTION [None]
  - BONE DEBRIDEMENT [None]
  - TOOTH EXTRACTION [None]
  - HYPERKERATOSIS [None]
  - BACK PAIN [None]
  - NAUSEA [None]
  - VOMITING [None]
  - SKIN NEOPLASM EXCISION [None]
  - EAR PAIN [None]
  - UTERINE PROLAPSE [None]
  - SQUAMOUS CELL CARCINOMA [None]
  - NEOPLASM MALIGNANT [None]
  - ATELECTASIS [None]
  - INJURY [None]
  - PAIN IN JAW [None]
  - STEM CELL TRANSPLANT [None]
  - OSTEOPENIA [None]
  - COUGH [None]
  - FLANK PAIN [None]
  - HAEMATOMA [None]
  - BASAL CELL CARCINOMA [None]
  - OSTEONECROSIS OF JAW [None]
  - PRIMARY SEQUESTRUM [None]
  - LICHENOID KERATOSIS [None]
  - SYNCOPE [None]
  - HEADACHE [None]
